FAERS Safety Report 8470661-9 (Version None)
Quarter: 2012Q2

REPORT INFORMATION
  Report Type: 
  Country: None (occurrence: None)
  Receive Date: 20120627
  Receipt Date: 20120626
  Transmission Date: 20120825
  Serious: Yes (Death, Other)
  Sender: FDA-Public Use
  Company Number: PHHY2012NL047241

PATIENT
  Sex: Male
  Weight: 82 kg

DRUGS (7)
  1. DICLOFENAC SODIUM [Concomitant]
     Dosage: 3X50MG UNK
     Dates: start: 20120502
  2. DEXAMETHASONE [Concomitant]
     Dosage: 04 MG, UNK
     Dates: start: 20120511
  3. ZOMETA [Suspect]
     Indication: PROSTATE CANCER METASTATIC
     Dosage: 4MG/100ML SOLUTION FOR INTRAVENOUS INFUSION (300ML/H) ONCE PER 28 DAYS
     Route: 042
     Dates: start: 20110905
  4. ZOMETA [Suspect]
     Dosage: 4MG/100ML SOLUTION FOR INTRAVENOUS INFUSION (300ML/H) ONCE PER 28 DAYS
     Route: 042
     Dates: start: 20120504
  5. DURAGESIC-100 [Concomitant]
     Dates: start: 20120330
  6. OXYCODONE HCL [Concomitant]
     Dosage: 05 MG, UNK
     Dates: start: 20120330
  7. ZOMETA [Suspect]
     Dosage: 4MG/100ML SOLUTION FOR INTRAVENOUS INFUSION (300ML/H) ONCE PER 28 DAYS
     Route: 042
     Dates: start: 20120529

REACTIONS (6)
  - HEPATIC FAILURE [None]
  - GENERAL PHYSICAL HEALTH DETERIORATION [None]
  - NEOPLASM MALIGNANT [None]
  - MALAISE [None]
  - NEOPLASM PROGRESSION [None]
  - TERMINAL STATE [None]
